FAERS Safety Report 5585199-6 (Version None)
Quarter: 2008Q1

REPORT INFORMATION
  Report Type: 
  Country: None (occurrence: None)
  Receive Date: 20080109
  Receipt Date: 20080107
  Transmission Date: 20080703
  Serious: Yes (Life-Threatening, Hospitalization)
  Sender: FDA-Public Use
  Company Number: PHRM2008FR00454

PATIENT
  Age: 59 Year
  Sex: Male

DRUGS (13)
  1. GLUCOPHAGE [Concomitant]
  2. ZYLORIC [Concomitant]
  3. DIFFU K [Concomitant]
  4. TRAMADOL HCL [Concomitant]
  5. LASILIX [Concomitant]
     Route: 048
  6. ZOXAN-TZ [Concomitant]
  7. IMOVANE [Concomitant]
  8. BROMAZEPAM [Concomitant]
  9. VALIUM [Concomitant]
  10. INIPOMP [Concomitant]
  11. XALATAN [Concomitant]
  12. LEVEMIR [Concomitant]
  13. VOLTAREN [Suspect]
     Indication: ARTHRALGIA
     Dosage: 1 DF, QD
     Route: 048
     Dates: start: 20070920, end: 20070926

REACTIONS (8)
  - ANURIA [None]
  - BLOOD CREATININE INCREASED [None]
  - C-REACTIVE PROTEIN INCREASED [None]
  - DIALYSIS [None]
  - OEDEMA [None]
  - PYREXIA [None]
  - RENAL FAILURE ACUTE [None]
  - WEIGHT INCREASED [None]
